FAERS Safety Report 22324394 (Version 3)
Quarter: 2024Q2

REPORT INFORMATION
  Report Type: Spontaneous
  Country: US (occurrence: US)
  Receive Date: 20230516
  Receipt Date: 20240502
  Transmission Date: 20240716
  Serious: No
  Sender: FDA-Public Use
  Company Number: US-PFIZER INC-PV202300086369

PATIENT
  Age: 6 Year
  Sex: Female

DRUGS (2)
  1. OXBRYTA [Suspect]
     Active Substance: VOXELOTOR
     Indication: Sickle cell disease
     Dosage: 2 DF, DAILY (2 TABLETS DAILY)
     Route: 048
  2. OXBRYTA [Suspect]
     Active Substance: VOXELOTOR
     Dosage: 300 MG. TABLETS FOR ORAL SUSPENSION, PREPARE 2 TABLETS, ONCE DAILY
     Route: 048
     Dates: start: 20240314

REACTIONS (1)
  - Vomiting [Unknown]
